FAERS Safety Report 13313736 (Version 1)
Quarter: 2017Q1

REPORT INFORMATION
  Report Type: Spontaneous
  Country: US (occurrence: US)
  Receive Date: 20170309
  Receipt Date: 20170309
  Transmission Date: 20170428
  Serious: Yes (Other)
  Sender: FDA-Public Use
  Company Number: US-TURING PHARMACEUTICALS-2016TNG00014

PATIENT
  Sex: Female
  Weight: 6.12 kg

DRUGS (12)
  1. DARAPRIM [Suspect]
     Active Substance: PYRIMETHAMINE
     Dosage: UNK UNK, 2X/DAY
     Route: 048
     Dates: start: 20160229, end: 20160308
  2. DARAPRIM [Suspect]
     Active Substance: PYRIMETHAMINE
     Dosage: UNK, 1X/DAY
     Dates: start: 20160309, end: 20160318
  3. LEUCOVORIN. [Concomitant]
     Active Substance: LEUCOVORIN
     Dosage: UNK, 3X/WEEK
  4. NYSTATIN. [Concomitant]
     Active Substance: NYSTATIN
     Dosage: UNK
  5. SULFADIAZINE. [Concomitant]
     Active Substance: SULFADIAZINE
     Dosage: UNK
     Dates: end: 20160426
  6. DARAPRIM [Suspect]
     Active Substance: PYRIMETHAMINE
     Dosage: 5 MG, 1X/DAY
     Route: 048
     Dates: start: 20160318, end: 20160328
  7. DARAPRIM [Suspect]
     Active Substance: PYRIMETHAMINE
     Dosage: 5.2 MG, 1X/DAY
     Route: 048
     Dates: start: 20160329, end: 20160404
  8. ALBUTEROL. [Concomitant]
     Active Substance: ALBUTEROL
     Dosage: UNK
  9. DARAPRIM [Suspect]
     Active Substance: PYRIMETHAMINE
     Dosage: UNK UNK, 1X/DAY
     Route: 048
     Dates: start: 20160424, end: 20160426
  10. LEUCOVORIN. [Concomitant]
     Active Substance: LEUCOVORIN
     Dosage: 20 MG, 1X/DAY
     Route: 048
     Dates: start: 2016
  11. DARAPRIM [Suspect]
     Active Substance: PYRIMETHAMINE
     Dosage: 5.6 MG, 1X/DAY
     Route: 048
     Dates: start: 20160405, end: 20160405
  12. DARAPRIM [Suspect]
     Active Substance: PYRIMETHAMINE
     Indication: CONGENITAL TOXOPLASMOSIS
     Dosage: 4.4 MG, 2X/DAY
     Route: 048
     Dates: start: 20160227, end: 20160228

REACTIONS (2)
  - Product compounding quality issue [Unknown]
  - Neutropenia [Recovering/Resolving]
